FAERS Safety Report 4725864-3 (Version None)
Quarter: 2005Q3

REPORT INFORMATION
  Report Type: 
  Country: None (occurrence: None)
  Receive Date: 20050725
  Receipt Date: 20050725
  Transmission Date: 20060218
  Serious: Yes (Life-Threatening)
  Sender: FDA-Public Use
  Company Number: None

PATIENT
  Age: 76 Year
  Sex: Female
  Weight: 72 kg

DRUGS (10)
  1. PROMETHAZINE [Suspect]
     Indication: NAUSEA
     Dosage: 12.5 MG TIMES ONE INTRAVENOUS
     Route: 042
     Dates: start: 20050717, end: 20050721
  2. LEVOFLOXACIN [Concomitant]
  3. ENOXAPARIN SODIUM [Concomitant]
  4. PANTOPRAZOLE [Concomitant]
  5. ATORVASTATIN CALCIUM [Concomitant]
  6. PREDNISONE [Concomitant]
  7. ASPIRIN [Concomitant]
  8. VERAPAMIL [Concomitant]
  9. MAGOX [Concomitant]
  10. SPIRONOLACTONE [Concomitant]

REACTIONS (4)
  - BLOOD PRESSURE SYSTOLIC INCREASED [None]
  - CARDIO-RESPIRATORY ARREST [None]
  - ELECTROMECHANICAL DISSOCIATION [None]
  - SINUS TACHYCARDIA [None]
